FAERS Safety Report 6334469-2 (Version None)
Quarter: 2009Q3

REPORT INFORMATION
  Report Type: 
  Country: None (occurrence: None)
  Receive Date: 20090831
  Receipt Date: 20090824
  Transmission Date: 20100115
  Serious: Yes (Hospitalization)
  Sender: FDA-Public Use
  Company Number: DK-JNJFOC-20090807124

PATIENT
  Age: 20 Year
  Sex: Male

DRUGS (4)
  1. REMICADE [Suspect]
     Route: 042
  2. REMICADE [Suspect]
     Route: 042
  3. REMICADE [Suspect]
     Route: 042
  4. REMICADE [Suspect]
     Indication: COLITIS ULCERATIVE
     Route: 042

REACTIONS (5)
  - ANAPHYLACTIC REACTION [None]
  - DRUG INEFFECTIVE [None]
  - HYPERSENSITIVITY [None]
  - INFUSION RELATED REACTION [None]
  - RESPIRATORY DISORDER [None]
